FAERS Safety Report 25948970 (Version 1)
Quarter: 2025Q4

REPORT INFORMATION
  Report Type: Other
  Country: US (occurrence: US)
  Receive Date: 20251022
  Receipt Date: 20251022
  Transmission Date: 20260117
  Serious: No
  Sender: AVA, INC.
  Company Number: US-AVA, Inc.-2187060

PATIENT
  Age: 61 Year
  Sex: Female

DRUGS (1)
  1. CHLORHEXIDINE GLUCONATE [Suspect]
     Active Substance: CHLORHEXIDINE GLUCONATE
     Indication: Skin abrasion

REACTIONS (3)
  - Application site pain [Unknown]
  - Skin abrasion [Unknown]
  - Product ineffective [Unknown]
